FAERS Safety Report 8906858 (Version 1)
Quarter: 2012Q4

REPORT INFORMATION
  Report Type: 
  Country: JP (occurrence: JP)
  Receive Date: 20121114
  Receipt Date: 20121114
  Transmission Date: 20130627
  Serious: Yes (Hospitalization)
  Sender: FDA-Public Use
  Company Number: JP-MERCK SHARP  DOHME D.O.O.-2012SP034501

PATIENT
  Age: 57 Year
  Sex: Male
  Weight: 49 kg

DRUGS (12)
  1. PEGINTRON [Suspect]
     Indication: HEPATITIS C
     Dosage: 0.82 Microgram per kilogram, qw
     Route: 058
     Dates: start: 20120606, end: 20120621
  2. PEGINTRON [Suspect]
     Dosage: 0.82 Microgram per kilogram, qw
     Route: 058
     Dates: start: 20120727, end: 20120803
  3. PEGINTRON [Suspect]
     Dosage: 0.82 Microgram per kilogram, qw
     Route: 058
     Dates: start: 20120817, end: 20120824
  4. REBETOL [Suspect]
     Indication: HEPATITIS C
     Dosage: 400 mg, QD
     Route: 048
     Dates: start: 20120606, end: 20120608
  5. REBETOL [Suspect]
     Dosage: 400 mg, qd
     Route: 048
     Dates: start: 20120613, end: 20120621
  6. REBETOL [Suspect]
     Dosage: 400 mg, qd
     Route: 048
     Dates: start: 20120727, end: 20120803
  7. REBETOL [Suspect]
     Dosage: 400 mg, qd
     Route: 048
     Dates: start: 20120817, end: 20120824
  8. TELAVIC [Suspect]
     Indication: HEPATITIS C
     Dosage: 1500 mg, qd
     Route: 048
     Dates: start: 20120606, end: 20120607
  9. NAUZELIN [Concomitant]
     Dosage: UPDATE(28JUN2012)FORMULATION :POR
     Route: 048
  10. LYRICA [Concomitant]
     Dosage: 1 DF, qd
     Route: 048
  11. TAKEPRON [Concomitant]
     Dosage: 1 DF, qd
     Route: 048
  12. ROHYPNOL [Concomitant]
     Route: 048

REACTIONS (1)
  - Rash [Recovering/Resolving]
